FAERS Safety Report 19357277 (Version 2)
Quarter: 2021Q2

REPORT INFORMATION
  Report Type: Other
  Country: FI (occurrence: FI)
  Receive Date: 20210601
  Receipt Date: 20210604
  Transmission Date: 20210717
  Serious: Yes (Hospitalization, Other)
  Sender: FDA-Public Use
  Company Number: FI-CELLTRION INC.-2021FI007182

PATIENT

DRUGS (25)
  1. TRACLEER [Suspect]
     Active Substance: BOSENTAN
     Indication: PRODUCT USED FOR UNKNOWN INDICATION
     Dosage: 62.5 MG
     Route: 065
     Dates: start: 201710
  2. SANDIMMUN [Suspect]
     Active Substance: CYCLOSPORINE
     Dosage: 175 MG
     Route: 065
     Dates: start: 2020
  3. PREDNISOLONE. [Suspect]
     Active Substance: PREDNISOLONE
     Dosage: 20 MGX1
     Route: 065
     Dates: start: 201704
  4. MEDROL [Suspect]
     Active Substance: METHYLPREDNISOLONE
     Indication: PRODUCT USED FOR UNKNOWN INDICATION
     Dosage: 8 MG
     Route: 065
     Dates: start: 2019
  5. LEFLUNOMIDE. [Suspect]
     Active Substance: LEFLUNOMIDE
     Indication: PRODUCT USED FOR UNKNOWN INDICATION
     Dosage: 20 MGX1
     Route: 065
     Dates: start: 201704, end: 201710
  6. AMLODIPINE [Suspect]
     Active Substance: AMLODIPINE BESYLATE
     Indication: PRODUCT USED FOR UNKNOWN INDICATION
     Dosage: 5 MG
     Route: 065
     Dates: start: 2019
  7. PREDNISOLONE. [Suspect]
     Active Substance: PREDNISOLONE
     Indication: INFECTION PROPHYLAXIS
     Dosage: 7.5 MG
     Route: 065
     Dates: start: 202011
  8. CELLCEPT [Suspect]
     Active Substance: MYCOPHENOLATE MOFETIL\MYCOPHENOLATE MOFETIL HYDROCHLORIDE
     Dosage: 500 MG
     Route: 065
     Dates: start: 2020
  9. CALCIUM D [CALCIUM;COLECALCIFEROL] [Suspect]
     Active Substance: CALCIUM\CHOLECALCIFEROL
     Indication: PRODUCT USED FOR UNKNOWN INDICATION
     Route: 065
  10. AZITHROMYCIN ANHYDROUS. [Suspect]
     Active Substance: AZITHROMYCIN ANHYDROUS
     Indication: INFECTION PROPHYLAXIS
     Dosage: UNK
     Route: 065
     Dates: start: 2020, end: 2020
  11. PREDNISOLONE. [Suspect]
     Active Substance: PREDNISOLONE
     Dosage: 10 MG
     Route: 065
     Dates: start: 2020
  12. PRIMASPAN [Suspect]
     Active Substance: ASPIRIN
     Dosage: 50 MG
     Route: 065
     Dates: start: 2020
  13. SANDIMMUN [Suspect]
     Active Substance: CYCLOSPORINE
     Dosage: 50 MG
     Route: 065
     Dates: start: 201710
  14. SANDIMMUN [Suspect]
     Active Substance: CYCLOSPORINE
     Dosage: 50MG PLUS 25 MG
     Route: 065
     Dates: start: 2019
  15. AMLODIPINE [Suspect]
     Active Substance: AMLODIPINE BESYLATE
     Dosage: 5 MG
     Route: 065
     Dates: start: 2020
  16. RAMIPRIL. [Suspect]
     Active Substance: RAMIPRIL
     Indication: PRODUCT USED FOR UNKNOWN INDICATION
     Dosage: 2.5 MG
     Route: 065
     Dates: start: 2020
  17. VALCYTE [Suspect]
     Active Substance: VALGANCICLOVIR HYDROCHLORIDE
     Indication: PRODUCT USED FOR UNKNOWN INDICATION
     Dosage: UNK
     Route: 065
  18. PRIMASPAN [Suspect]
     Active Substance: ASPIRIN
     Indication: PRODUCT USED FOR UNKNOWN INDICATION
     Dosage: 100 MG
     Route: 065
     Dates: start: 201704
  19. VALGANCICLOVIR. [Suspect]
     Active Substance: VALGANCICLOVIR
     Indication: INFECTION PROPHYLAXIS
     Dosage: UNK
     Route: 065
     Dates: start: 2020
  20. RITUXIMAB (UNKNOWN) [Suspect]
     Active Substance: RITUXIMAB
     Indication: SYSTEMIC SCLERODERMA
     Dosage: 1000 MG, EVERY 1 WEEK
     Route: 042
     Dates: start: 201704
  21. PREDNISOLONE. [Suspect]
     Active Substance: PREDNISOLONE
     Dosage: 20?40 MG X 1
     Route: 065
     Dates: start: 201710
  22. SANDIMMUN [Suspect]
     Active Substance: CYCLOSPORINE
     Indication: INFECTION PROPHYLAXIS
     Dosage: 150MG PLUS 100 MG
     Route: 065
     Dates: start: 2020
  23. SANDIMMUN [Suspect]
     Active Substance: CYCLOSPORINE
     Dosage: 175MG PLUS 150 MG
     Route: 065
     Dates: start: 202011
  24. CELLCEPT [Suspect]
     Active Substance: MYCOPHENOLATE MOFETIL\MYCOPHENOLATE MOFETIL HYDROCHLORIDE
     Indication: INFECTION PROPHYLAXIS
     Dosage: 250 MG
     Route: 065
     Dates: start: 2020
  25. SILDENAFIL. [Suspect]
     Active Substance: SILDENAFIL
     Indication: PRODUCT USED FOR UNKNOWN INDICATION
     Dosage: 20 MG
     Route: 065
     Dates: start: 201704

REACTIONS (15)
  - Nasopharyngitis [Unknown]
  - Product use in unapproved indication [Unknown]
  - Deafness [Unknown]
  - Dyspnoea [Recovered/Resolved]
  - Pneumocystis jirovecii infection [Unknown]
  - Musculoskeletal stiffness [Unknown]
  - Infected skin ulcer [Unknown]
  - Pneumonia [Unknown]
  - Headache [Unknown]
  - Productive cough [Unknown]
  - Skin ulcer [Recovering/Resolving]
  - Nausea [Unknown]
  - Urinary tract infection [Unknown]
  - Cerebrovascular accident [Unknown]
  - Off label use [Unknown]

NARRATIVE: CASE EVENT DATE: 201704
